FAERS Safety Report 4627025-5 (Version None)
Quarter: 2005Q2

REPORT INFORMATION
  Report Type: 
  Country: None (occurrence: None)
  Receive Date: 20050405
  Receipt Date: 20041112
  Transmission Date: 20051028
  Serious: Yes (Other)
  Sender: FDA-Public Use
  Company Number: PHBS2004BR15370

PATIENT
  Sex: Female

DRUGS (1)
  1. MIACALCIN [Suspect]
     Dosage: 100 IU, ONCE/SINGLE
     Route: 058
     Dates: start: 20041001, end: 20041001

REACTIONS (4)
  - BLOOD PRESSURE DECREASED [None]
  - CHILLS [None]
  - FEELING ABNORMAL [None]
  - SYNCOPE [None]
